FAERS Safety Report 9468842 (Version 1)
Quarter: 2013Q3

REPORT INFORMATION
  Report Type: Spontaneous
  Country: US (occurrence: US)
  Receive Date: 20130821
  Receipt Date: 20130821
  Transmission Date: 20140515
  Serious: No
  Sender: FDA-Public Use
  Company Number: US-BAYER-2013-100877

PATIENT
  Age: 70 Year
  Sex: Male
  Weight: 104.31 kg

DRUGS (6)
  1. ALEVE CAPLET [Suspect]
     Indication: BACK PAIN
     Dosage: 2 DF, QD
     Route: 048
     Dates: start: 20130813, end: 20130814
  2. BAYER ASPIRIN REGIMEN ADULT LOW STRENGTH [Suspect]
     Indication: ISCHAEMIC HEART DISEASE PROPHYLAXIS
     Dosage: 1 DF, QD
     Route: 048
  3. ONE A DAY ESSENTIAL [Suspect]
     Indication: VITAMIN SUPPLEMENTATION
     Dosage: 1 DF, AFTER MEALS
     Route: 048
  4. ULTRAM [Concomitant]
     Dosage: UNK
  5. PREVACID [Concomitant]
     Dosage: UNK
  6. VITAMIN D [Concomitant]
     Dosage: UNK

REACTIONS (2)
  - Insomnia [None]
  - Expired drug administered [None]
